FAERS Safety Report 6575650-7 (Version None)
Quarter: 2010Q1

REPORT INFORMATION
  Report Type: 
  Country: None (occurrence: None)
  Receive Date: 20100208
  Receipt Date: 20100208
  Transmission Date: 20100710
  Serious: Yes (Life-Threatening)
  Sender: FDA-Public Use
  Company Number: None

PATIENT
  Age: 98 Year
  Sex: Male
  Weight: 72.5755 kg

DRUGS (7)
  1. AVELOX [Suspect]
     Indication: PNEUMONIA
     Dates: start: 20100128, end: 20100130
  2. GLYBURIDE [Concomitant]
  3. LASIX [Concomitant]
  4. NORVASC [Concomitant]
  5. DIGOXIN [Concomitant]
  6. COUMADIN [Concomitant]
  7. PRILOSEC [Concomitant]

REACTIONS (4)
  - BLOOD CREATININE INCREASED [None]
  - CONFUSIONAL STATE [None]
  - URINARY RETENTION [None]
  - URINE OUTPUT DECREASED [None]
